FAERS Safety Report 22651501 (Version 3)
Quarter: 2024Q2

REPORT INFORMATION
  Report Type: Spontaneous
  Country: US (occurrence: US)
  Receive Date: 20230628
  Receipt Date: 20240415
  Transmission Date: 20240716
  Serious: No
  Sender: FDA-Public Use
  Company Number: US-PFIZER INC-202101802873

PATIENT
  Age: 65 Year
  Sex: Female

DRUGS (8)
  1. XELJANZ XR [Suspect]
     Active Substance: TOFACITINIB CITRATE
     Dosage: 11 MG
  2. PREDNISONE [Concomitant]
     Active Substance: PREDNISONE
     Dosage: 2 MG
  3. PREDNISONE [Concomitant]
     Active Substance: PREDNISONE
     Dosage: TAPERING DOWN
  4. VITAMIN D3 [Concomitant]
     Active Substance: CHOLECALCIFEROL
  5. FAMOTIDINE [Concomitant]
     Active Substance: FAMOTIDINE
  6. HYDROXYCHLOROQUINE DIPHOSPHATE [Concomitant]
     Active Substance: HYDROXYCHLOROQUINE DIPHOSPHATE
  7. TYLENOL [Concomitant]
     Active Substance: ACETAMINOPHEN
  8. ESTRADIOL [Concomitant]
     Active Substance: ESTRADIOL

REACTIONS (2)
  - Urinary tract infection [Unknown]
  - Intentional dose omission [Unknown]
